FAERS Safety Report 6781944-2 (Version None)
Quarter: 2010Q2

REPORT INFORMATION
  Report Type: 
  Country: None (occurrence: None)
  Receive Date: 20100621
  Receipt Date: 20100610
  Transmission Date: 20101027
  Serious: Yes (Hospitalization)
  Sender: FDA-Public Use
  Company Number: US-ELI_LILLY_AND_COMPANY-US201006003882

PATIENT
  Age: 76 Year
  Sex: Female

DRUGS (2)
  1. EFFIENT [Suspect]
     Indication: CORONARY ARTERY OCCLUSION
     Dosage: 5 MG, UNKNOWN
     Dates: start: 20100401, end: 20100501
  2. EFFIENT [Suspect]
     Dosage: 10 MG, DAILY (1/D)
     Dates: start: 20100501

REACTIONS (1)
  - CHEST PAIN [None]
